FAERS Safety Report 12699506 (Version 1)
Quarter: 2016Q3

REPORT INFORMATION
  Report Type: Spontaneous
  Country: US (occurrence: US)
  Receive Date: 20160830
  Receipt Date: 20160830
  Transmission Date: 20161109
  Serious: No
  Sender: FDA-Public Use
  Company Number: US-SUPERNUS PHARMACEUTICALS, INC.-2016SUP00133

PATIENT
  Age: 62 Year
  Sex: Female
  Weight: 76.64 kg

DRUGS (20)
  1. NORCO [Concomitant]
     Active Substance: ACETAMINOPHEN\HYDROCODONE BITARTRATE
     Dosage: 1 UNK, AS NEEDED
  2. NEURONTIN [Concomitant]
     Active Substance: GABAPENTIN
     Dosage: 2 TABLETS, 3X/DAY
  3. TROKENDI XR [Suspect]
     Active Substance: TOPIRAMATE
     Indication: MIGRAINE
     Dosage: 50 MG, 1X/DAY
     Route: 048
     Dates: start: 201605, end: 20160717
  4. NORTRIPTYLINE [Concomitant]
     Active Substance: NORTRIPTYLINE
     Dosage: 1 UNK, 1X/DAY
  5. VITAMIN C [Concomitant]
     Active Substance: ASCORBIC ACID
  6. BACLOFEN. [Concomitant]
     Active Substance: BACLOFEN
     Dosage: UNK, 3X/DAY
  7. TEGRETOL [Concomitant]
     Active Substance: CARBAMAZEPINE
     Dosage: UNK, 4X/DAY
  8. FLEXERIL [Concomitant]
     Active Substance: CYCLOBENZAPRINE HYDROCHLORIDE
     Dosage: UNK, 1X/DAY
  9. BUSPAR [Concomitant]
     Active Substance: BUSPIRONE HYDROCHLORIDE
     Dosage: 1 UNK, 3X/DAY
  10. PREDNISONE. [Concomitant]
     Active Substance: PREDNISONE
     Dosage: 1 TABLETS, 1X/DAY
  11. ASPIRIN. [Concomitant]
     Active Substance: ASPIRIN
  12. PLAQUENIL [Concomitant]
     Active Substance: HYDROXYCHLOROQUINE SULFATE
     Dosage: 1 UNK, 2X/DAY
  13. CELEXA [Concomitant]
     Active Substance: CITALOPRAM HYDROBROMIDE
     Dosage: 1 UNK, 1X/DAY
  14. METFORMIN [Concomitant]
     Active Substance: METFORMIN HYDROCHLORIDE
     Dosage: 1000 UNK, 2X/DAY
  15. ATENOLOL. [Concomitant]
     Active Substance: ATENOLOL
     Dosage: 1 UNK, 1X/DAY
  16. CALCIUM [Concomitant]
     Active Substance: CALCIUM
  17. MELOXICAM. [Concomitant]
     Active Substance: MELOXICAM
     Dosage: 1 UNK, 1X/DAY
  18. IRON [Concomitant]
     Active Substance: IRON
     Dosage: UNK, 1X/DAY
  19. PRAVASTATIN. [Concomitant]
     Active Substance: PRAVASTATIN
     Dosage: 1 UNK, 1X/DAY
  20. LISINOPRIL. [Concomitant]
     Active Substance: LISINOPRIL
     Dosage: 10 UNK, 1X/DAY

REACTIONS (2)
  - Dry mouth [Not Recovered/Not Resolved]
  - Off label use [Not Recovered/Not Resolved]

NARRATIVE: CASE EVENT DATE: 201606
